FAERS Safety Report 6525086-X (Version None)
Quarter: 2009Q4

REPORT INFORMATION
  Report Type: 
  Country: None (occurrence: None)
  Receive Date: 20091222
  Receipt Date: 20091216
  Transmission Date: 20100525
  Serious: Yes (Hospitalization)
  Sender: FDA-Public Use
  Company Number: DSM-2009-01928

PATIENT
  Age: 76 Year
  Sex: Female
  Weight: 72 kg

DRUGS (3)
  1. OLMESARTAN MEDOXOMIL/AMLODIPINE/HYDROCHLOROTHIAZIDE [Suspect]
     Indication: ESSENTIAL HYPERTENSION
     Dosage: 40/5 MG (1 IN 1 D), ORAL
     Route: 048
     Dates: start: 20090728, end: 20090812
  2. DIURETICS (DIURETICS) [Concomitant]
  3. LIPID LOWERING DRUG (SERUMLIPIDREDUCING AGENTS) [Concomitant]

REACTIONS (2)
  - LARGE INTESTINAL ULCER [None]
  - SUBILEUS [None]
